FAERS Safety Report 14408803 (Version 4)
Quarter: 2018Q2

REPORT INFORMATION
  Report Type: Spontaneous
  Country: US (occurrence: US)
  Receive Date: 20180119
  Receipt Date: 20180425
  Transmission Date: 20180711
  Serious: Yes (Death, Hospitalization, Other)
  Sender: FDA-Public Use
  Company Number: US-BRISTOL-MYERS SQUIBB COMPANY-BMS-2018-004366

PATIENT
  Age: 58 Year
  Sex: Female
  Weight: 58.5 kg

DRUGS (1)
  1. ORENCIA [Suspect]
     Active Substance: ABATACEPT
     Indication: RHEUMATOID ARTHRITIS
     Dosage: 125 MG/ML, QWK
     Route: 058
     Dates: start: 201407

REACTIONS (3)
  - Oropharyngeal pain [Unknown]
  - Death [Fatal]
  - Localised infection [Unknown]

NARRATIVE: CASE EVENT DATE: 20180324
